FAERS Safety Report 9396358 (Version 2)
Quarter: 2013Q3

REPORT INFORMATION
  Report Type: Spontaneous
  Country: US (occurrence: US)
  Receive Date: 20130711
  Receipt Date: 20130809
  Transmission Date: 20140515
  Serious: No
  Sender: FDA-Public Use
  Company Number: US-BIOGENIDEC-2013BI060744

PATIENT
  Age: 59 Year
  Sex: Male

DRUGS (2)
  1. AVONEX [Suspect]
     Indication: MULTIPLE SCLEROSIS
     Route: 030
     Dates: start: 19980803
  2. AVONEX [Suspect]
     Indication: MULTIPLE SCLEROSIS
     Route: 030
     Dates: start: 200008

REACTIONS (11)
  - Urinary tract infection [Unknown]
  - Staphylococcal infection [Unknown]
  - Blood sodium decreased [Unknown]
  - Blood glucose increased [Unknown]
  - Blood urea increased [Unknown]
  - Glomerular filtration rate decreased [Unknown]
  - Alanine aminotransferase decreased [Unknown]
  - Haematocrit decreased [Unknown]
  - Red blood cell count decreased [Unknown]
  - Haemoglobin decreased [Unknown]
  - Blood creatinine increased [Unknown]
